FAERS Safety Report 10130957 (Version 1)
Quarter: 2014Q2

REPORT INFORMATION
  Report Type: Spontaneous
  Country: AU (occurrence: AU)
  Receive Date: 20140428
  Receipt Date: 20140428
  Transmission Date: 20141212
  Serious: Yes (Other)
  Sender: FDA-Public Use
  Company Number: AU-ELI_LILLY_AND_COMPANY-AU201404007842

PATIENT
  Age: 53 Year
  Sex: Male
  Weight: 84 kg

DRUGS (10)
  1. CYMBALTA [Suspect]
     Indication: SCHIZOAFFECTIVE DISORDER
     Dosage: 60 MG, QD
     Route: 048
     Dates: start: 2011
  2. OLANZAPINE [Suspect]
     Indication: SCHIZOAFFECTIVE DISORDER
     Dosage: 15 MG, QD
     Route: 048
     Dates: start: 2012
  3. VARENICLINE TARTRATE [Suspect]
     Indication: SMOKING CESSATION THERAPY
     Dosage: UNK UNK, UNKNOWN
     Route: 065
     Dates: start: 20131007, end: 20131231
  4. VARENICLINE TARTRATE [Suspect]
     Dosage: 1 MG, UNKNOWN
     Route: 065
     Dates: end: 20131231
  5. BUPROPION HYDROCHLORIDE [Suspect]
     Indication: SMOKING CESSATION THERAPY
     Dosage: UNK UNK, UNKNOWN
     Route: 065
     Dates: start: 20131007, end: 20131231
  6. BUPROPION HYDROCHLORIDE [Suspect]
     Dosage: 150 MG, UNKNOWN
     Route: 065
     Dates: end: 20131231
  7. NICOTINE [Suspect]
     Indication: SMOKING CESSATION THERAPY
     Dosage: UNK, UNKNOWN
     Route: 062
     Dates: start: 20131014
  8. NICOTINE [Suspect]
     Dosage: 7 MG, UNKNOWN
     Route: 062
     Dates: end: 20131231
  9. DIAZEPAM [Suspect]
     Indication: SCHIZOAFFECTIVE DISORDER
     Dosage: 5 MG, PRN
     Route: 048
     Dates: start: 2012
  10. CRESTOR [Suspect]
     Indication: DYSLIPIDAEMIA
     Dosage: 20 MG, QD
     Route: 048
     Dates: start: 2003

REACTIONS (4)
  - Alanine aminotransferase increased [Recovering/Resolving]
  - Aspartate aminotransferase increased [Recovering/Resolving]
  - Blood bilirubin increased [Recovering/Resolving]
  - Off label use [Unknown]
